FAERS Safety Report 24608567 (Version 1)
Quarter: 2024Q4

REPORT INFORMATION
  Report Type: Spontaneous
  Country: FR (occurrence: FR)
  Receive Date: 20241112
  Receipt Date: 20241112
  Transmission Date: 20250114
  Serious: Yes (Other)
  Sender: AUROBINDO
  Company Number: FR-AFSSAPS-AVNT2024000814

PATIENT
  Age: 34 Year
  Sex: Female

DRUGS (5)
  1. ALPRAZOLAM [Suspect]
     Active Substance: ALPRAZOLAM
     Indication: Product used for unknown indication
     Dosage: UNK [AU MOINS 2 MG/J]
     Route: 048
     Dates: start: 2023
  2. ZOPICLONE [Suspect]
     Active Substance: ZOPICLONE
     Indication: Product used for unknown indication
     Dosage: UNK [AU MOINS 15 MG/J ET JUSQU^? 30 MG/J]
     Route: 048
     Dates: start: 2023
  3. ALCOHOL [Suspect]
     Active Substance: ALCOHOL
     Indication: Product used for unknown indication
     Dosage: UNK [BI?RE DE 33 CL ? 8.5? +1.5L DE VIN, 1/2 BOUTEILLE DE VODKA]
     Route: 048
     Dates: start: 2008
  4. CANNABIS SATIVA SUBSP. INDICA TOP [Suspect]
     Active Substance: CANNABIS SATIVA SUBSP. INDICA TOP
     Indication: Product used for unknown indication
     Dosage: UNK (2 JOINTS/J)
     Dates: start: 2005
  5. VALIUM [Suspect]
     Active Substance: DIAZEPAM
     Indication: Product used for unknown indication
     Dosage: UNK [AU MOINS 60 MG/J]
     Route: 048
     Dates: start: 2023

REACTIONS (2)
  - Drug use disorder [Not Recovered/Not Resolved]
  - Substance use disorder [Not Recovered/Not Resolved]
